FAERS Safety Report 10457654 (Version 2)
Quarter: 2014Q3

REPORT INFORMATION
  Report Type: Spontaneous
  Country: US (occurrence: US)
  Receive Date: 20140916
  Receipt Date: 20140916
  Transmission Date: 20150326
  Serious: Yes (Death)
  Sender: FDA-Public Use
  Company Number: US-BAUSCH-SYM-2013-13898

PATIENT
  Age: 44 Year
  Sex: Male

DRUGS (1)
  1. XENAZINE [Suspect]
     Active Substance: TETRABENAZINE
     Indication: HUNTINGTON^S DISEASE
     Route: 048
     Dates: start: 20131120

REACTIONS (3)
  - Renal disorder [Unknown]
  - Intentional self-injury [Fatal]
  - Insomnia [Unknown]

NARRATIVE: CASE EVENT DATE: 20140306
